FAERS Safety Report 20705609 (Version 1)
Quarter: 2022Q2

REPORT INFORMATION
  Report Type: Spontaneous
  Country: US (occurrence: None)
  Receive Date: 20220412
  Receipt Date: 20220412
  Transmission Date: 20220721
  Serious: Yes (Other)
  Sender: FDA-Public Use
  Company Number: None

PATIENT
  Age: 62 Year
  Sex: Female
  Weight: 59.85 kg

DRUGS (3)
  1. KLISYRI [Suspect]
     Active Substance: TIRBANIBULIN
     Indication: Actinic keratosis
     Dosage: OTHER QUANTITY : 1 SINGLE-DOSE PACKET;?FREQUENCY : DAILY;?
     Route: 061
     Dates: start: 20220407, end: 20220411
  2. CALCIUM [Concomitant]
     Active Substance: CALCIUM
  3. VITAMINS [Concomitant]
     Active Substance: VITAMINS

REACTIONS (4)
  - Pruritus [None]
  - Swelling [None]
  - Blister [None]
  - Erythema [None]

NARRATIVE: CASE EVENT DATE: 20220412
